FAERS Safety Report 8264766-5 (Version None)
Quarter: 2012Q2

REPORT INFORMATION
  Report Type: 
  Country: None (occurrence: None)
  Receive Date: 20120406
  Receipt Date: 20120327
  Transmission Date: 20120825
  Serious: Yes (Disabling, Other)
  Sender: FDA-Public Use
  Company Number: JP-BRISTOL-MYERS SQUIBB COMPANY-16456386

PATIENT
  Age: 65 Year
  Sex: Female

DRUGS (3)
  1. PRAVASTATIN SODIUM [Suspect]
     Route: 048
     Dates: start: 20100801
  2. PROPRANOLOL HYDROCHLORIDE [Suspect]
     Indication: SINUS TACHYCARDIA
     Route: 048
     Dates: start: 20111227, end: 20120310
  3. METFORMIN HCL [Suspect]
     Indication: DIABETES MELLITUS
     Route: 048
     Dates: start: 20120124, end: 20120309

REACTIONS (2)
  - HEPATITIS [None]
  - GASTRITIS [None]
